FAERS Safety Report 7023241-6 (Version None)
Quarter: 2010Q3

REPORT INFORMATION
  Report Type: 
  Country: None (occurrence: None)
  Receive Date: 20100930
  Receipt Date: 20100923
  Transmission Date: 20110219
  Serious: Yes (Death, Other)
  Sender: FDA-Public Use
  Company Number: US-GILEAD-2010-0031887

PATIENT
  Sex: Male
  Weight: 77.634 kg

DRUGS (14)
  1. LETAIRIS [Suspect]
     Indication: PULMONARY ARTERIAL HYPERTENSION
     Route: 048
     Dates: start: 20070926
  2. VENTAVIS [Concomitant]
     Indication: PULMONARY ARTERIAL HYPERTENSION
     Dates: start: 20070127
  3. ASPIRIN [Concomitant]
  4. METOLAZONE [Concomitant]
  5. OXYGEN [Concomitant]
  6. POTASSIUM CHLORIDE [Concomitant]
  7. THYROID [Concomitant]
  8. FUROSEMIDE [Concomitant]
  9. MIDODRINE HYDROCHLORIDE [Concomitant]
  10. SUPER OMEGA 3 [Concomitant]
  11. COQ-10 [Concomitant]
  12. FISH OIL [Concomitant]
  13. FLUDROCORTISONE [Concomitant]
  14. L-CARNITINE [Concomitant]

REACTIONS (3)
  - BLOOD BILIRUBIN INCREASED [None]
  - DEATH [None]
  - TRANSAMINASES INCREASED [None]
